FAERS Safety Report 23869344 (Version 2)
Quarter: 2024Q3

REPORT INFORMATION
  Report Type: Report from Study
  Country: US (occurrence: US)
  Receive Date: 20240517
  Receipt Date: 20240808
  Transmission Date: 20241017
  Serious: No
  Sender: ALEXION PHARMACEUTICALS
  Company Number: US-ALXN-A202102282

PATIENT
  Sex: Female

DRUGS (4)
  1. ULTOMIRIS [Suspect]
     Active Substance: RAVULIZUMAB-CWVZ
     Indication: Atypical haemolytic uraemic syndrome
     Dosage: UNK
     Route: 065
  2. AMBIEN [Concomitant]
     Active Substance: ZOLPIDEM TARTRATE
     Indication: Product used for unknown indication
     Route: 065
  3. MIRALAX [Concomitant]
     Active Substance: POLYETHYLENE GLYCOL 3350
     Indication: Product used for unknown indication
     Dosage: UNK, QD
     Route: 065
  4. Dulcolax [Concomitant]
     Indication: Product used for unknown indication
     Dosage: UNK
     Route: 065

REACTIONS (11)
  - Oropharyngeal pain [Not Recovered/Not Resolved]
  - Erythema [Unknown]
  - Skin lesion [Unknown]
  - Pruritus [Unknown]
  - Dry skin [Unknown]
  - Chapped lips [Unknown]
  - Hair texture abnormal [Unknown]
  - Joint stiffness [Unknown]
  - Insomnia [Unknown]
  - Headache [Unknown]
  - Arthralgia [Unknown]
